FAERS Safety Report 5246727-3 (Version None)
Quarter: 2007Q1

REPORT INFORMATION
  Report Type: 
  Country: None (occurrence: None)
  Receive Date: 20070220
  Receipt Date: 20070201
  Transmission Date: 20070707
  Serious: Yes (Hospitalization)
  Sender: FDA-Public Use
  Company Number: US-CVT-070029

PATIENT
  Age: 39 Year
  Sex: Female
  Weight: 93 kg

DRUGS (10)
  1. RANEXA [Suspect]
     Indication: ANGINA PECTORIS
     Dosage: 500 MG, BID, ORAL, 1000 MG, BID, ORAL
     Route: 048
     Dates: start: 20060914, end: 20061025
  2. RANEXA [Suspect]
     Indication: ANGINA PECTORIS
     Dosage: 500 MG, BID, ORAL, 1000 MG, BID, ORAL
     Route: 048
     Dates: start: 20061026
  3. LIPITOR/01326101/ (ATORVASTATIN) [Concomitant]
  4. FUROSEMIDE /00032601/ (FUROSEMIDE) [Concomitant]
  5. IMDUR [Concomitant]
  6. K-DUR 10 [Concomitant]
  7. LEXAPRO [Concomitant]
  8. TOPROL-XL [Concomitant]
  9. TICLID (TICLOPIDINE HYDROCHLOLRIDE) [Concomitant]
  10. XANAX [Concomitant]

REACTIONS (5)
  - CARDIAC FAILURE [None]
  - DYSURIA [None]
  - NEUROGENIC BLADDER [None]
  - OEDEMA PERIPHERAL [None]
  - WEIGHT INCREASED [None]
